FAERS Safety Report 5879896-2 (Version None)
Quarter: 2008Q3

REPORT INFORMATION
  Report Type: 
  Country: None (occurrence: None)
  Receive Date: 20080912
  Receipt Date: 20080908
  Transmission Date: 20090109
  Serious: Yes (Hospitalization)
  Sender: FDA-Public Use
  Company Number: IT-PFIZER INC-2008073043

PATIENT
  Sex: Female

DRUGS (4)
  1. SALAZOPYRIN [Suspect]
     Indication: PSORIATIC ARTHROPATHY
     Route: 048
     Dates: start: 20080429, end: 20080531
  2. AMOXICILLIN + CLAVULANATE POTASSIUM [Suspect]
     Indication: OROPHARYNGEAL PAIN
     Dosage: DAILY DOSE:2GRAM
     Route: 048
     Dates: start: 20080530, end: 20080531
  3. CIPROFLOXACIN [Suspect]
     Indication: OROPHARYNGEAL PAIN
     Dosage: DAILY DOSE:500MG
     Route: 048
     Dates: start: 20080529, end: 20080529
  4. TRIASPORIN [Concomitant]
     Route: 048
     Dates: start: 20080531, end: 20080613

REACTIONS (3)
  - DYSPNOEA [None]
  - ERYTHEMA [None]
  - HEPATIC ENZYME INCREASED [None]
